FAERS Safety Report 10610133 (Version 1)
Quarter: 2014Q4

REPORT INFORMATION
  Report Type: Spontaneous
  Country: TW (occurrence: None)
  Receive Date: 20141124
  Receipt Date: 20141124
  Transmission Date: 20150529
  Serious: Yes (Life-Threatening, Hospitalization)
  Sender: FDA-Public Use
  Company Number: IMP_08218_2014

PATIENT
  Age: 46 Year
  Sex: Female

DRUGS (1)
  1. ORPHENADRINE [Suspect]
     Active Substance: ORPHENADRINE
     Indication: SUICIDE ATTEMPT
     Dosage: NOT THE PRESCRIBED DOSE
     Route: 048

REACTIONS (11)
  - Intentional overdose [None]
  - Dry skin [None]
  - Blood pressure increased [None]
  - Radiculopathy [None]
  - Stupor [None]
  - Musculoskeletal pain [None]
  - Rhabdomyolysis [None]
  - Suicide attempt [None]
  - Joint dislocation [None]
  - Seizure [None]
  - Nausea [None]
